FAERS Safety Report 8817775 (Version 1)
Quarter: 2012Q4

REPORT INFORMATION
  Report Type: 
  Country: BR (occurrence: BR)
  Receive Date: 20121001
  Receipt Date: 20121001
  Transmission Date: 20130627
  Serious: Yes (Other)
  Sender: FDA-Public Use
  Company Number: PHHY2012BR084680

PATIENT
  Age: 37 Year
  Sex: Female

DRUGS (8)
  1. LEPONEX [Suspect]
     Indication: SCHIZOPHRENIA
     Dosage: 0.25 DF,daily
     Route: 048
     Dates: start: 20120418
  2. LEPONEX [Suspect]
     Dosage: 0.5 DF, daily
     Route: 048
  3. LEPONEX [Suspect]
     Dosage: 1 DF, daily
     Route: 048
  4. LEPONEX [Suspect]
     Dosage: 150 mg, daily
     Route: 048
  5. LEPONEX [Suspect]
     Dosage: 250 mg, daily
     Route: 048
  6. LEPONEX [Suspect]
     Dosage: 350 mg, daily
     Route: 048
  7. LEPONEX [Suspect]
     Dosage: 400 mg, daily
     Route: 048
  8. LEPONEX [Suspect]
     Dosage: 100 mg, 2 tablets a day
     Route: 048
     Dates: start: 201207

REACTIONS (4)
  - Fall [Unknown]
  - Abasia [Not Recovered/Not Resolved]
  - Hypotension [Unknown]
  - Gait disturbance [Unknown]
